FAERS Safety Report 9279427 (Version 1)
Quarter: 2013Q2

REPORT INFORMATION
  Report Type: Spontaneous
  Country: US (occurrence: US)
  Receive Date: 20130508
  Receipt Date: 20130508
  Transmission Date: 20140414
  Serious: No
  Sender: FDA-Public Use
  Company Number: US-009507513-1305USA003660

PATIENT
  Sex: Female

DRUGS (2)
  1. CLARITIN [Suspect]
     Indication: NASAL CONGESTION
     Dosage: UNK, UNKNOWN
     Route: 048
     Dates: start: 20130426
  2. CLARITIN [Suspect]
     Dosage: UNK, UNKNOWN
     Route: 048
     Dates: start: 20130427

REACTIONS (1)
  - Drug ineffective [Unknown]
